FAERS Safety Report 17947584 (Version 1)
Quarter: 2020Q2

REPORT INFORMATION
  Report Type: Spontaneous
  Country: JP (occurrence: JP)
  Receive Date: 20200626
  Receipt Date: 20200626
  Transmission Date: 20200714
  Serious: Yes (Life-Threatening, Hospitalization)
  Sender: FDA-Public Use
  Company Number: JP-STRIDES ARCOLAB LIMITED-2020SP007296

PATIENT
  Age: 14 Year
  Sex: Male

DRUGS (3)
  1. OSELTAMIVIR [Suspect]
     Active Substance: OSELTAMIVIR
     Indication: INFLUENZA
     Dosage: 75 MILLIGRAM, BID
     Route: 065
  2. PARACETAMOL [Concomitant]
     Active Substance: ACETAMINOPHEN
     Indication: INFLUENZA
     Dosage: 400 MILLIGRAM, PRN
     Route: 065
  3. PARACETAMOL [Concomitant]
     Active Substance: ACETAMINOPHEN
     Indication: PYREXIA
     Dosage: UNK
     Route: 065

REACTIONS (10)
  - Abdominal pain [Recovered/Resolved]
  - Hyporesponsive to stimuli [Recovered/Resolved]
  - Lethargy [Recovered/Resolved]
  - Normocytic anaemia [Recovered/Resolved]
  - Pallor [Recovered/Resolved]
  - Colitis ischaemic [Recovered/Resolved]
  - Enterocolitis haemorrhagic [Recovered/Resolved]
  - Nausea [Recovered/Resolved]
  - Shock haemorrhagic [Recovered/Resolved]
  - Haematochezia [Recovered/Resolved]
